FAERS Safety Report 5438329-0 (Version None)
Quarter: 2007Q3

REPORT INFORMATION
  Report Type: 
  Country: None (occurrence: None)
  Receive Date: 20070831
  Receipt Date: 20070821
  Transmission Date: 20080115
  Serious: No
  Sender: FDA-Public Use
  Company Number: A0672654A

PATIENT

DRUGS (2)
  1. ALLI [Suspect]
     Indication: WEIGHT CONTROL
  2. TUMS [Suspect]
     Indication: WEIGHT CONTROL

REACTIONS (4)
  - DRUG INEFFECTIVE [None]
  - DYSPEPSIA [None]
  - GASTROINTESTINAL DISORDER [None]
  - ODYNOPHAGIA [None]
